FAERS Safety Report 7585921-3 (Version None)
Quarter: 2011Q3

REPORT INFORMATION
  Report Type: 
  Country: None (occurrence: None)
  Receive Date: 20110701
  Receipt Date: 20110629
  Transmission Date: 20111222
  Serious: Yes (Hospitalization)
  Sender: FDA-Public Use
  Company Number: TW-ROXANE LABORATORIES, INC.-2011-RO-00902RO

PATIENT
  Age: 35 Year
  Sex: Female

DRUGS (4)
  1. ZOLPIDEM [Suspect]
  2. ZOLPIDEM [Suspect]
  3. OVER THE COUNTER COLD SYRUP [Concomitant]
     Indication: HEADACHE
  4. ZOLPIDEM [Suspect]

REACTIONS (7)
  - ANXIETY [None]
  - PALPITATIONS [None]
  - INSOMNIA [None]
  - DYSPNOEA [None]
  - RESTLESSNESS [None]
  - DRUG DEPENDENCE [None]
  - GRAND MAL CONVULSION [None]
